FAERS Safety Report 6800867-3 (Version None)
Quarter: 2010Q2

REPORT INFORMATION
  Report Type: 
  Country: None (occurrence: None)
  Receive Date: 20100629
  Receipt Date: 20100616
  Transmission Date: 20101027
  Serious: Yes (Other)
  Sender: FDA-Public Use
  Company Number: CZ-PFIZER INC-2010079362

PATIENT
  Sex: Female

DRUGS (1)
  1. MEDROL [Suspect]
     Indication: RHEUMATOID ARTHRITIS
     Dosage: 24 MG/DAY

REACTIONS (1)
  - OESOPHAGEAL CANDIDIASIS [None]
